FAERS Safety Report 8872509 (Version 1)
Quarter: 2012Q4

REPORT INFORMATION
  Report Type: 
  Country: US (occurrence: US)
  Receive Date: 20121026
  Receipt Date: 20121026
  Transmission Date: 20130627
  Serious: No
  Sender: FDA-Public Use
  Company Number: US-AMGEN-USASP2012045962

PATIENT
  Age: 67 Year
  Sex: Male

DRUGS (3)
  1. ENBREL [Suspect]
     Indication: RHEUMATOID ARTHRITIS
     Dosage: 50 mg, qwk
     Route: 058
     Dates: start: 20120605
  2. METHOTREXATE [Concomitant]
     Dosage: UNK
  3. ORENCIA [Concomitant]
     Dosage: UNK

REACTIONS (8)
  - Injection site mass [Unknown]
  - Injection site swelling [Unknown]
  - Hypersensitivity [Unknown]
  - Injection site pain [Unknown]
  - Injection site erythema [Unknown]
  - Injection site bruising [Unknown]
  - Injection site reaction [Unknown]
  - Injection site pruritus [Unknown]
